FAERS Safety Report 6796414-5 (Version None)
Quarter: 2010Q2

REPORT INFORMATION
  Report Type: 
  Country: None (occurrence: None)
  Receive Date: 20100627
  Receipt Date: 20100617
  Transmission Date: 20101027
  Serious: Yes (Other)
  Sender: FDA-Public Use
  Company Number: US-BRISTOL-MYERS SQUIBB COMPANY-14651301

PATIENT
  Age: 70 Year
  Sex: Female
  Weight: 73 kg

DRUGS (7)
  1. HYDREA [Suspect]
     Indication: ESSENTIAL THROMBOCYTHAEMIA
     Dosage: REDUCED TO 400MG AND THAN TO 300MG 1GM/DAY
     Route: 048
     Dates: start: 20090428
  2. DROXIA [Suspect]
     Dosage: DOSAGE FORM = TABLET
  3. SINGULAIR [Concomitant]
  4. ALLEGRA [Concomitant]
  5. ALPRAZOLAM [Concomitant]
  6. AMBIEN [Concomitant]
  7. CANDID B [Concomitant]

REACTIONS (10)
  - ALLERGY TO CHEMICALS [None]
  - BLOOD POTASSIUM INCREASED [None]
  - CANDIDIASIS [None]
  - DRUG INTOLERANCE [None]
  - FATIGUE [None]
  - HYPERSENSITIVITY [None]
  - PAIN OF SKIN [None]
  - PHOTOSENSITIVITY REACTION [None]
  - RASH [None]
  - VIRAL INFECTION [None]
